FAERS Safety Report 6620026-7 (Version None)
Quarter: 2010Q1

REPORT INFORMATION
  Report Type: 
  Country: None (occurrence: None)
  Receive Date: 20100309
  Receipt Date: 20100302
  Transmission Date: 20100710
  Serious: Yes (Hospitalization, Other)
  Sender: FDA-Public Use
  Company Number: US-SANOFI-AVENTIS-2010SA012084

PATIENT
  Age: 66 Year
  Sex: Female

DRUGS (5)
  1. LANTUS [Suspect]
     Indication: TYPE 2 DIABETES MELLITUS
     Dosage: DOSE:80 UNIT(S)
     Route: 058
     Dates: start: 20060301
  2. LOVENOX [Concomitant]
  3. PREDNISONE [Concomitant]
  4. GLYBURIDE [Concomitant]
  5. THYROID THERAPY [Concomitant]

REACTIONS (4)
  - BLOOD GLUCOSE INCREASED [None]
  - INJECTION SITE NODULE [None]
  - KNEE OPERATION [None]
  - SURGERY [None]
